FAERS Safety Report 25460486 (Version 4)
Quarter: 2025Q4

REPORT INFORMATION
  Report Type: Spontaneous
  Country: US (occurrence: US)
  Receive Date: 20250620
  Receipt Date: 20251210
  Transmission Date: 20260117
  Serious: Yes (Other)
  Sender: SANOFI AVENTIS
  Company Number: US-SA-2025SA174712

PATIENT
  Age: 33 Year
  Sex: Female

DRUGS (3)
  1. DUPIXENT [Suspect]
     Active Substance: DUPILUMAB
     Indication: Dermatitis atopic
     Dosage: 300 MG, QOW
     Route: 058
     Dates: end: 202509
  2. DUPIXENT [Suspect]
     Active Substance: DUPILUMAB
     Dosage: 300 MG, QOW
     Route: 058
     Dates: start: 202510, end: 2025
  3. LORATADINE [Concomitant]
     Active Substance: LORATADINE
     Indication: Dry eye
     Dosage: UNK

REACTIONS (4)
  - Corneal infection [Unknown]
  - Ulcerative keratitis [Unknown]
  - Dry skin [Unknown]
  - Photophobia [Unknown]

NARRATIVE: CASE EVENT DATE: 20250101
